FAERS Safety Report 4438797-7 (Version None)
Quarter: 2004Q3

REPORT INFORMATION
  Report Type: 
  Country: None (occurrence: None)
  Receive Date: 20040901
  Receipt Date: 20040820
  Transmission Date: 20050211
  Serious: Yes (Disabling)
  Sender: FDA-Public Use
  Company Number: FR-BRISTOL-MYERS SQUIBB COMPANY-12686432

PATIENT
  Age: 16 Year
  Sex: Female

DRUGS (15)
  1. ENDOXAN [Suspect]
     Indication: ACUTE MYELOID LEUKAEMIA
     Dates: start: 19900721, end: 19900722
  2. ETOPOSIDE [Suspect]
     Indication: ACUTE MYELOID LEUKAEMIA
     Dates: start: 19890901, end: 19900101
  3. METHOTREXATE [Suspect]
     Indication: ACUTE MYELOID LEUKAEMIA
     Dates: start: 19890901, end: 19900101
  4. MITOXANTRONE [Suspect]
     Indication: ACUTE MYELOID LEUKAEMIA
     Dates: start: 19890901, end: 19900101
  5. MELPHALAN [Suspect]
     Indication: ACUTE MYELOID LEUKAEMIA
     Dates: start: 19900724, end: 19900724
  6. ARACYTINE [Suspect]
     Indication: ACUTE MYELOID LEUKAEMIA
     Dates: start: 19890901, end: 19900101
  7. PURINETHOL [Suspect]
     Dates: start: 19890901, end: 19900101
  8. VINCRISTINE [Suspect]
     Indication: ACUTE MYELOID LEUKAEMIA
     Dates: start: 19890901, end: 19900101
  9. MYLERAN [Suspect]
     Indication: ACUTE MYELOID LEUKAEMIA
     Dates: start: 19900717, end: 19900723
  10. EPITOMAX [Suspect]
     Route: 048
     Dates: start: 20031231
  11. SABRILEX [Suspect]
     Route: 048
     Dates: start: 19950111, end: 20030604
  12. TEGRETOL [Suspect]
     Route: 048
     Dates: start: 19930924, end: 19980107
  13. RIVOTRIL [Concomitant]
     Indication: EPILEPSY
     Dates: start: 19900101, end: 19930101
  14. DEPAKINE [Concomitant]
     Indication: EPILEPSY
     Dates: start: 19900101, end: 19930101
  15. KANEURON [Concomitant]
     Indication: EPILEPSY
     Dates: start: 19900101, end: 19930101

REACTIONS (2)
  - AMENORRHOEA [None]
  - DELAYED PUBERTY [None]
